FAERS Safety Report 10166052 (Version 1)
Quarter: 2014Q2

REPORT INFORMATION
  Report Type: Spontaneous
  Country: NL (occurrence: NL)
  Receive Date: 20140512
  Receipt Date: 20140512
  Transmission Date: 20141212
  Serious: Yes (Death)
  Sender: FDA-Public Use
  Company Number: NL-ROCHE-1394670

PATIENT
  Age: 53 Year
  Sex: Male

DRUGS (2)
  1. VEMURAFENIB [Suspect]
     Indication: MALIGNANT MELANOMA
     Route: 048
  2. VEMURAFENIB [Suspect]
     Route: 048

REACTIONS (3)
  - Disseminated intravascular coagulation [Fatal]
  - Hemiparesis [Fatal]
  - Haemorrhage [Fatal]
